FAERS Safety Report 9148452 (Version 1)
Quarter: 2013Q1

REPORT INFORMATION
  Report Type: Spontaneous
  Country: IN (occurrence: IN)
  Receive Date: 20130308
  Receipt Date: 20130308
  Transmission Date: 20140127
  Serious: Yes (Death, Hospitalization, Other)
  Sender: FDA-Public Use
  Company Number: PHHY2013IN022497

PATIENT
  Sex: Female
  Weight: 75 kg

DRUGS (2)
  1. ZOMETA [Suspect]
     Indication: HYPERCALCAEMIA OF MALIGNANCY
     Dosage: 4 MG/100 ML
     Dates: start: 2011
  2. FEMARA [Suspect]
     Indication: BREAST CANCER FEMALE
     Dosage: 2.5 MG, PER DAY
     Route: 048
     Dates: start: 20111208, end: 20130106

REACTIONS (12)
  - Brain neoplasm [Fatal]
  - Dyspnoea [Unknown]
  - Back pain [Unknown]
  - Syncope [Unknown]
  - Loss of consciousness [Unknown]
  - Fracture [Unknown]
  - Pelvic pain [Unknown]
  - Malignant neoplasm progression [Unknown]
  - Spinal cord disorder [Unknown]
  - Musculoskeletal pain [Unknown]
  - Headache [Unknown]
  - Vomiting [Unknown]
